FAERS Safety Report 5711171-9 (Version None)
Quarter: 2008Q2

REPORT INFORMATION
  Report Type: 
  Country: None (occurrence: None)
  Receive Date: 20080421
  Receipt Date: 20080410
  Transmission Date: 20081010
  Serious: Yes (Hospitalization)
  Sender: FDA-Public Use
  Company Number: US-JNJFOC-20080403967

PATIENT
  Sex: Female
  Weight: 89.36 kg

DRUGS (2)
  1. DURAGESIC-100 [Suspect]
     Indication: PAIN
     Dosage: 100 AND 50 UG PATCHES
     Route: 062
  2. AMBIEN [Concomitant]
     Route: 048

REACTIONS (4)
  - INAPPROPRIATE SCHEDULE OF DRUG ADMINISTRATION [None]
  - PAIN [None]
  - SURGERY [None]
  - WRONG TECHNIQUE IN DRUG USAGE PROCESS [None]
